FAERS Safety Report 25922613 (Version 1)
Quarter: 2025Q4

REPORT INFORMATION
  Report Type: Spontaneous
  Country: US (occurrence: US)
  Receive Date: 20251015
  Receipt Date: 20251015
  Transmission Date: 20260117
  Serious: Yes (Hospitalization, Other)
  Sender: BAXTER
  Company Number: US-MLMSERVICE-20251001-PI664374-00128-1

PATIENT
  Age: 67 Year
  Sex: Male

DRUGS (13)
  1. CYCLOPHOSPHAMIDE [Suspect]
     Active Substance: CYCLOPHOSPHAMIDE
     Indication: Non-Hodgkin^s lymphoma
     Dosage: ONE CYCLE
     Route: 065
  2. CYCLOPHOSPHAMIDE [Suspect]
     Active Substance: CYCLOPHOSPHAMIDE
     Dosage: SECOND CHEMOTHERAPY CYCLE
     Route: 065
  3. DOXORUBICIN [Suspect]
     Active Substance: DOXORUBICIN
     Indication: Non-Hodgkin^s lymphoma
     Dosage: ONE CYCLE
     Route: 065
  4. DOXORUBICIN [Suspect]
     Active Substance: DOXORUBICIN
     Dosage: SECOND CHEMOTHERAPY CYCLE
     Route: 065
  5. VANCOMYCIN [Suspect]
     Active Substance: VANCOMYCIN
     Indication: Septic shock
     Dosage: EMPIRIC ANTIMICROBIAL THERAPY
     Route: 065
  6. VINCRISTINE [Suspect]
     Active Substance: VINCRISTINE
     Indication: Non-Hodgkin^s lymphoma
     Dosage: ONE CYCLE
     Route: 065
  7. VINCRISTINE [Suspect]
     Active Substance: VINCRISTINE
     Dosage: SECOND CHEMOTHERAPY CYCLE
     Route: 065
  8. PREDNISONE [Suspect]
     Active Substance: PREDNISONE
     Indication: Non-Hodgkin^s lymphoma
     Dosage: ONE CYCLE
     Route: 065
  9. PREDNISONE [Suspect]
     Active Substance: PREDNISONE
     Dosage: SECOND CHEMOTHERAPY CYCLE
     Route: 065
  10. OBINUTUZUMAB [Suspect]
     Active Substance: OBINUTUZUMAB
     Indication: Non-Hodgkin^s lymphoma
     Dosage: UNK
     Route: 065
  11. AMPHOTERICIN B [Suspect]
     Active Substance: AMPHOTERICIN B
     Indication: Histoplasmosis disseminated
     Dosage: EMPIRIC ANTIFUNGAL THERAPY
     Route: 065
  12. AMPHOTERICIN B [Suspect]
     Active Substance: AMPHOTERICIN B
     Indication: Pleural effusion
     Dosage: 1 DOSAGE FORM, 3X A WEEK (MODIFIED)
     Route: 065
  13. OCTREOTIDE [Concomitant]
     Active Substance: OCTREOTIDE
     Indication: Chylothorax
     Dosage: UNK
     Route: 065

REACTIONS (16)
  - Histoplasmosis disseminated [Recovering/Resolving]
  - Pyrexia [Unknown]
  - Malaise [Unknown]
  - Dizziness [Unknown]
  - Hypotension [Unknown]
  - Tachycardia [Unknown]
  - Breath sounds abnormal [Unknown]
  - Pleural effusion [Unknown]
  - Mediastinal effusion [Unknown]
  - Septic shock [Unknown]
  - Febrile neutropenia [Unknown]
  - Oesophageal fistula [Unknown]
  - Septic shock [Unknown]
  - Pericarditis [Unknown]
  - Nephropathy toxic [Unknown]
  - Acute kidney injury [Unknown]
